FAERS Safety Report 5460946-2 (Version None)
Quarter: 2007Q3

REPORT INFORMATION
  Report Type: 
  Country: None (occurrence: None)
  Receive Date: 20070823
  Receipt Date: 20070619
  Transmission Date: 20080115
  Serious: No
  Sender: FDA-Public Use
  Company Number: SPV1-2007-02829

PATIENT
  Age: 60 Year
  Sex: Female
  Weight: 111.1 kg

DRUGS (23)
  1. FOSRENOL [Suspect]
     Indication: HYPERPHOSPHATAEMIA
     Dosage: 1000 MG TID, ORAL; 250 MG WITH MEALS
     Route: 048
     Dates: start: 20060101
  2. FOSRENOL [Suspect]
     Indication: HYPERPHOSPHATAEMIA
     Dosage: 1000 MG TID, ORAL; 250 MG WITH MEALS
     Route: 048
     Dates: start: 20060101
  3. PHOSLO [Concomitant]
  4. TOPROL XL (METOPROLOL TARTRATE) [Concomitant]
  5. DONNATAL L.A. (ATROPINE SULFATE, HYOSCINE HYDROBROMIDE, HYOSCYAMINE SU [Concomitant]
  6. LOMOTIL [Concomitant]
  7. OXYCODONE HCL (OXYCODONE HYDROCHLORIDE) [Concomitant]
  8. LEVOXYL [Concomitant]
  9. CYCLOBENZAPRINE [Concomitant]
  10. OMEPRAZOLE [Concomitant]
  11. EPOGEN [Concomitant]
  12. VENOFER [Concomitant]
  13. PAREGORIC (BENZOIC ACID, CAMPHOR, ETHANOL, GLYCEROL, ILLICIUM VERUM OI [Concomitant]
  14. FIBERCON (POLYCARBOPHIL) [Concomitant]
  15. NEPHROCAPS (FOLIC ACID, VITAMINS NOS) [Concomitant]
  16. ASPIRIN [Concomitant]
  17. PROTEIN SUPPLEMENTS [Concomitant]
  18. AVC VAGINAL [Concomitant]
  19. ANUSOL-HC (HYDROCORTISONE ACETATE) [Concomitant]
  20. REGLAN [Concomitant]
  21. LIPITOR [Concomitant]
  22. LOMOTIL [Concomitant]
  23. NITROGLYCERIN [Concomitant]

REACTIONS (5)
  - BLOOD CALCIUM ABNORMAL [None]
  - BLOOD UREA ABNORMAL [None]
  - PHARMACEUTICAL PRODUCT COMPLAINT [None]
  - SWOLLEN TONGUE [None]
  - UREA RENAL CLEARANCE DECREASED [None]
